FAERS Safety Report 15504467 (Version 1)
Quarter: 2018Q4

REPORT INFORMATION
  Report Type: Spontaneous
  Country: US (occurrence: US)
  Receive Date: 20181009
  Receipt Date: 20181009
  Transmission Date: 20190205
  Serious: Yes (Other)
  Sender: FDA-Public Use
  Company Number: None

PATIENT
  Age: 47 Year
  Sex: Female
  Weight: 70.65 kg

DRUGS (4)
  1. NULOJIX [Suspect]
     Active Substance: BELATACEPT
     Indication: RENAL TRANSPLANT
     Dosage: ?          OTHER FREQUENCY:D1, D5, WKS,2,4,8,;?
     Route: 041
     Dates: start: 20180901, end: 20181005
  2. NULOJIX [Suspect]
     Active Substance: BELATACEPT
     Indication: PROPHYLAXIS
     Dosage: ?          OTHER FREQUENCY:D1, D5, WKS,2,4,8,;?
     Route: 041
     Dates: start: 20180901, end: 20181005
  3. STERILE WATER 10ML [Concomitant]
     Dates: start: 20180901
  4. SODIUM CHLORIDE 100ML BAG [Concomitant]
     Dates: start: 20180901

REACTIONS (3)
  - Eye swelling [None]
  - Infusion related reaction [None]
  - Peripheral swelling [None]

NARRATIVE: CASE EVENT DATE: 20181007
